FAERS Safety Report 14869815 (Version 1)
Quarter: 2018Q2

REPORT INFORMATION
  Report Type: Spontaneous
  Country: FR (occurrence: FR)
  Receive Date: 20180509
  Receipt Date: 20180509
  Transmission Date: 20180711
  Serious: Yes (Hospitalization, Other)
  Sender: FDA-Public Use
  Company Number: FR-MERCK KGAA-2047477

PATIENT
  Age: 78 Year
  Sex: Female

DRUGS (1)
  1. NOVOTHYROX [Suspect]
     Active Substance: LEVOTHYROXINE SODIUM
     Indication: PRODUCT USED FOR UNKNOWN INDICATION

REACTIONS (26)
  - Dizziness [None]
  - Decreased appetite [None]
  - Hot flush [None]
  - Palpitations [None]
  - Abdominal pain upper [None]
  - Depression [None]
  - Alopecia [None]
  - Vertigo [None]
  - Fatigue [None]
  - Impaired driving ability [None]
  - Throat irritation [None]
  - Blood pressure increased [Not Recovered/Not Resolved]
  - Muscle spasms [None]
  - Blood thyroid stimulating hormone decreased [None]
  - Depressed level of consciousness [None]
  - Arrhythmia [Recovering/Resolving]
  - Emotional distress [None]
  - Malaise [None]
  - Vision blurred [None]
  - Social avoidant behaviour [None]
  - Thyroxine free increased [None]
  - Gastroenteritis [None]
  - Loss of personal independence in daily activities [None]
  - Anxiety [None]
  - Crying [None]
  - Tri-iodothyronine free increased [None]

NARRATIVE: CASE EVENT DATE: 201709
